FAERS Safety Report 20826416 (Version 1)
Quarter: 2022Q2

REPORT INFORMATION
  Report Type: Spontaneous
  Country: US (occurrence: None)
  Receive Date: 20220512
  Receipt Date: 20220512
  Transmission Date: 20220721
  Serious: Yes (Other)
  Sender: FDA-Public Use
  Company Number: None

PATIENT
  Age: 87 Year
  Sex: Male

DRUGS (1)
  1. VOTRIENT [Suspect]
     Active Substance: PAZOPANIB HYDROCHLORIDE
     Dosage: 600MG DAILY ORAL?
     Route: 048
     Dates: start: 202201, end: 202205

REACTIONS (5)
  - Quality of life decreased [None]
  - Diarrhoea [None]
  - Cognitive disorder [None]
  - Fatigue [None]
  - Disease progression [None]

NARRATIVE: CASE EVENT DATE: 20220107
